FAERS Safety Report 8551823-9 (Version None)
Quarter: 2012Q3

REPORT INFORMATION
  Report Type: 
  Country: None (occurrence: None)
  Receive Date: 20120730
  Receipt Date: 20120724
  Transmission Date: 20120928
  Serious: Yes (Other)
  Sender: FDA-Public Use
  Company Number: CA-JNJFOC-20120712119

PATIENT
  Sex: Female
  Weight: 69 kg

DRUGS (5)
  1. CLONAZEPAM [Concomitant]
  2. METHOTREXATE [Concomitant]
  3. STELARA [Suspect]
     Indication: PSORIASIS
     Dates: start: 20060101
  4. ZOLOFT [Concomitant]
  5. VITAMIN B-12 [Concomitant]

REACTIONS (1)
  - RAYNAUD'S PHENOMENON [None]
